FAERS Safety Report 17210974 (Version 5)
Quarter: 2020Q1

REPORT INFORMATION
  Report Type: Report from Study
  Country: None (occurrence: RO)
  Receive Date: 20191227
  Receipt Date: 20200202
  Transmission Date: 20200409
  Serious: Yes (Other)
  Sender: FDA-Public Use
  Company Number: RO-ABBVIE-19K-135-3207060-00

PATIENT
  Age: 64 Year
  Sex: Female

DRUGS (7)
  1. BETALOK [Concomitant]
     Active Substance: METOPROLOL SUCCINATE
     Indication: HYPERTENSION
     Route: 048
  2. ALPHA D3 [Concomitant]
     Active Substance: ALFACALCIDOL
     Indication: RHEUMATOID ARTHRITIS
     Route: 048
  3. EUTHYROX [Concomitant]
     Active Substance: LEVOTHYROXINE SODIUM
     Indication: RHEUMATOID ARTHRITIS
     Route: 048
  4. HUMIRA [Suspect]
     Active Substance: ADALIMUMAB
     Indication: RHEUMATOID ARTHRITIS
     Route: 058
     Dates: start: 20161015
  5. SULFASALAZINE. [Concomitant]
     Active Substance: SULFASALAZINE
     Indication: RHEUMATOID ARTHRITIS
     Route: 048
  6. OMEZ [Concomitant]
     Active Substance: OMEPRAZOLE
     Indication: ULCER
     Route: 048
  7. BETASERC [Concomitant]
     Active Substance: BETAHISTINE
     Indication: HYPERTENSION
     Route: 048

REACTIONS (11)
  - Urticaria [Recovered/Resolved]
  - Urticaria [Unknown]
  - Hypertension [Not Recovered/Not Resolved]
  - Nasopharyngitis [Not Recovered/Not Resolved]
  - Immunodeficiency [Not Recovered/Not Resolved]
  - Therapeutic response shortened [Unknown]
  - Inguinal hernia [Recovered/Resolved]
  - Tonsillitis [Not Recovered/Not Resolved]
  - Arthralgia [Unknown]
  - Incorrect product administration duration [Recovered/Resolved]
  - Urticaria [Recovered/Resolved]

NARRATIVE: CASE EVENT DATE: 2018
